FAERS Safety Report 7700855-9 (Version None)
Quarter: 2011Q3

REPORT INFORMATION
  Report Type: 
  Country: None (occurrence: None)
  Receive Date: 20110822
  Receipt Date: 20110810
  Transmission Date: 20111222
  Serious: Yes (Other)
  Sender: FDA-Public Use
  Company Number: PHHY2011NL72065

PATIENT
  Sex: Female

DRUGS (3)
  1. ZOMETA [Suspect]
     Indication: BREAST CANCER METASTATIC
     Dosage: 4 MG/ 5 ML, ONCE PER 28 DAYS
     Route: 042
     Dates: start: 20101014
  2. ZOMETA [Suspect]
     Dosage: 4 MG/ 5 ML, ONCE PER 28 DAYS
     Route: 042
     Dates: start: 20110624
  3. ZOMETA [Suspect]
     Dosage: 4 MG/ 5 ML, ONCE PER 28 DAYS
     Route: 042
     Dates: start: 20110727

REACTIONS (1)
  - FEMUR FRACTURE [None]
